FAERS Safety Report 7910913-1 (Version None)
Quarter: 2011Q4

REPORT INFORMATION
  Report Type: 
  Country: None (occurrence: None)
  Receive Date: 20111114
  Receipt Date: 20111102
  Transmission Date: 20120403
  Serious: No
  Sender: FDA-Public Use
  Company Number: US-BIOGENIDEC-2011BI042188

PATIENT
  Age: 43 Year
  Sex: Female

DRUGS (2)
  1. TYSABRI [Suspect]
     Indication: MULTIPLE SCLEROSIS
     Route: 042
     Dates: start: 20090401
  2. EXFORGE [Concomitant]
     Indication: HYPERTENSION

REACTIONS (6)
  - DEPRESSION [None]
  - HEPATIC ENZYME INCREASED [None]
  - MEMORY IMPAIRMENT [None]
  - CENTRAL NERVOUS SYSTEM LESION [None]
  - FATIGUE [None]
  - PAIN IN EXTREMITY [None]
